FAERS Safety Report 10177194 (Version 2)
Quarter: 2014Q2

REPORT INFORMATION
  Report Type: Spontaneous
  Country: CA (occurrence: CA)
  Receive Date: 20140516
  Receipt Date: 20140516
  Transmission Date: 20141212
  Serious: Yes (Other)
  Sender: FDA-Public Use
  Company Number: CA-JNJFOC-20140201717

PATIENT
  Sex: Female
  Weight: 83.92 kg

DRUGS (1)
  1. REMICADE [Suspect]
     Indication: CROHN^S DISEASE
     Route: 042
     Dates: end: 201403

REACTIONS (7)
  - Haemorrhage [Unknown]
  - Arthritis [Unknown]
  - Abdominal pain upper [Unknown]
  - Weight decreased [Unknown]
  - Exposure during pregnancy [Not Recovered/Not Resolved]
  - Gastrointestinal pain [Unknown]
  - Fatigue [Unknown]
